FAERS Safety Report 9838610 (Version 1)
Quarter: 2014Q1

REPORT INFORMATION
  Report Type: Report from Study
  Country: US (occurrence: US)
  Receive Date: 20140123
  Receipt Date: 20140123
  Transmission Date: 20141002
  Serious: Yes (Other)
  Sender: FDA-Public Use
  Company Number: US-CELGENEUS-163-21880-14012532

PATIENT
  Age: 44 Year
  Sex: Female

DRUGS (2)
  1. REVLIMID [Suspect]
     Indication: MYELODYSPLASTIC SYNDROME
     Dosage: 10 MILLIGRAM
     Route: 048
  2. REVLIMID [Suspect]
     Dosage: 7.5 MILLIGRAM
     Route: 048

REACTIONS (5)
  - Cytogenetic abnormality [Unknown]
  - Thrombocytopenia [Unknown]
  - Blood iron increased [Unknown]
  - Fatigue [Unknown]
  - Neutropenia [Unknown]
